FAERS Safety Report 8134545-8 (Version None)
Quarter: 2012Q1

REPORT INFORMATION
  Report Type: 
  Country: None (occurrence: None)
  Receive Date: 20120209
  Receipt Date: 20120201
  Transmission Date: 20120608
  Serious: Yes (Death, Hospitalization)
  Sender: FDA-Public Use
  Company Number: ACO_29286_2012

PATIENT
  Age: 48 Year
  Sex: Male

DRUGS (14)
  1. TIZANIDINE HYDROCHLORIDE [Suspect]
     Indication: MUSCLE SPASMS
     Dosage: ORAL
     Route: 048
  2. LORAZEPAM [Concomitant]
  3. ATORVASTATIN CALCIUM [Concomitant]
  4. REMERON [Concomitant]
  5. TARGIN (NALOXONE HYDROCHLORIDE, OXYCODONE HYDROCHLORIDE) [Concomitant]
  6. HYOSCINE HBR HYT [Concomitant]
  7. NULYTELY [Concomitant]
  8. INDERAL [Concomitant]
  9. CLOZAPINE [Suspect]
     Indication: PRODUCT USED FOR UNKNOWN INDICATION
  10. SURMONTIL [Concomitant]
  11. PANTOZOL (PANTOPRAZOLE SODIUM SESQUIHYDRATE) [Concomitant]
  12. GILEYA (FINGOLIMOD HYDROCHLORIDE) [Suspect]
     Indication: MULTIPLE SCLEROSIS
     Dosage: ORAL
     Route: 048
     Dates: start: 20110427
  13. MOTILIUM [Concomitant]
  14. MAGNESIOCARD (MAGNESIUM ASPARTATE HYDROCHLORIDE) [Concomitant]

REACTIONS (5)
  - COMPLETED SUICIDE [None]
  - DEPRESSION [None]
  - FEAR [None]
  - MULTIPLE SCLEROSIS RELAPSE [None]
  - PAIN [None]
